FAERS Safety Report 7293209-3 (Version None)
Quarter: 2011Q1

REPORT INFORMATION
  Report Type: 
  Country: None (occurrence: None)
  Receive Date: 20110215
  Receipt Date: 20110209
  Transmission Date: 20110831
  Serious: Yes (Hospitalization)
  Sender: FDA-Public Use
  Company Number: SE-PFIZER INC-2011028825

PATIENT
  Age: 81 Year
  Sex: Female

DRUGS (3)
  1. RIMACTANE [Suspect]
     Dosage: 450 MG, 2X/DAY
     Route: 048
     Dates: start: 20101124, end: 20101222
  2. DALACIN [Suspect]
     Dosage: 300 MG, 3X/DAY
     Route: 048
     Dates: start: 20101124, end: 20101222
  3. IBUMETIN [Concomitant]
     Dosage: UNK

REACTIONS (2)
  - PYREXIA [None]
  - DYSPNOEA [None]
